FAERS Safety Report 25339480 (Version 2)
Quarter: 2025Q2

REPORT INFORMATION
  Report Type: Spontaneous
  Country: US (occurrence: US)
  Receive Date: 20250521
  Receipt Date: 20250624
  Transmission Date: 20250717
  Serious: No
  Sender: BIOGEN
  Company Number: US-BIOGEN-2025BI01299051

PATIENT
  Sex: Female
  Weight: 88.258 kg

DRUGS (5)
  1. VUMERITY [Suspect]
     Active Substance: DIROXIMEL FUMARATE
     Indication: Multiple sclerosis
     Dosage: TAKE 2 CAPSULES TWICE A DAY, STOPPED TAKING IN MAR-2025/APR-2025
     Route: 050
     Dates: start: 20250117
  2. VUMERITY [Suspect]
     Active Substance: DIROXIMEL FUMARATE
     Dosage: TAKING 1 CAPSULES TWICE A DAY
     Route: 050
  3. VUMERITY [Suspect]
     Active Substance: DIROXIMEL FUMARATE
     Dosage: RESTARTED MAY-2025/JUN-2025
     Route: 050
     Dates: start: 2025
  4. VUMERITY [Suspect]
     Active Substance: DIROXIMEL FUMARATE
     Dosage: RESTARTED MAY-2025/JUN-2025
     Route: 050
     Dates: start: 2025
  5. ASPIRIN [Concomitant]
     Active Substance: ASPIRIN
     Route: 050

REACTIONS (9)
  - Underdose [Unknown]
  - Depression [Unknown]
  - Gastrointestinal infection [Unknown]
  - Abdominal discomfort [Unknown]
  - Illness [Unknown]
  - Skin burning sensation [Unknown]
  - Flushing [Unknown]
  - Urticaria [Unknown]
  - Dyspepsia [Unknown]
